FAERS Safety Report 4342134-6 (Version None)
Quarter: 2004Q2

REPORT INFORMATION
  Report Type: 
  Country: None (occurrence: None)
  Receive Date: 20040409
  Receipt Date: 20031002
  Transmission Date: 20050107
  Serious: Yes (Hospitalization)
  Sender: FDA-Public Use
  Company Number: 03P-163-0235956-00

PATIENT
  Age: 46 Year
  Sex: Female

DRUGS (5)
  1. DEPAKOTE [Suspect]
     Indication: BIPOLAR DISORDER
     Dosage: SEE IMAGE
     Route: 048
     Dates: start: 19980101
  2. DEPAKOTE [Suspect]
     Indication: BIPOLAR DISORDER
     Dosage: SEE IMAGE
     Route: 048
     Dates: start: 19980101
  3. RISPERIDONE [Concomitant]
  4. BUPROPION HYDROCHLORIDE [Concomitant]
  5. QUETIAPINE [Concomitant]

REACTIONS (1)
  - PANCREATITIS [None]
